FAERS Safety Report 24763188 (Version 2)
Quarter: 2024Q4

REPORT INFORMATION
  Report Type: Spontaneous
  Country: IL (occurrence: IL)
  Receive Date: 20241222
  Receipt Date: 20241223
  Transmission Date: 20250115
  Serious: Yes (Other)
  Sender: ALEXION PHARMACEUTICALS
  Company Number: IL-AstraZeneca-CH-00770525A

PATIENT
  Age: 40 Year

DRUGS (8)
  1. SAPHNELO [Suspect]
     Active Substance: ANIFROLUMAB-FNIA
     Dosage: 900 MG EVERY 4 WEEKS
     Route: 065
  2. SAPHNELO [Suspect]
     Active Substance: ANIFROLUMAB-FNIA
     Dosage: 900 MG EVERY 4 WEEKS
     Route: 065
  3. SAPHNELO [Suspect]
     Active Substance: ANIFROLUMAB-FNIA
     Dosage: 900 MG EVERY 4 WEEKS
     Route: 065
  4. SAPHNELO [Suspect]
     Active Substance: ANIFROLUMAB-FNIA
     Dosage: 900 MG EVERY 4 WEEKS
     Route: 065
  5. SAPHNELO [Suspect]
     Active Substance: ANIFROLUMAB-FNIA
     Dosage: 300 MG IV EVERY 4 WEEKS
     Route: 065
  6. SAPHNELO [Suspect]
     Active Substance: ANIFROLUMAB-FNIA
     Dosage: 300 MG IV EVERY 4 WEEKS
     Route: 065
  7. SAPHNELO [Suspect]
     Active Substance: ANIFROLUMAB-FNIA
     Dosage: 300 MG IV EVERY 4 WEEKS
     Route: 065
  8. SAPHNELO [Suspect]
     Active Substance: ANIFROLUMAB-FNIA
     Dosage: 300 MG IV EVERY 4 WEEKS
     Route: 065

REACTIONS (4)
  - Transient ischaemic attack [Unknown]
  - Arteriosclerosis [Unknown]
  - Vasculitis [Unknown]
  - Infection susceptibility increased [Unknown]
